FAERS Safety Report 16580177 (Version 1)
Quarter: 2019Q3

REPORT INFORMATION
  Report Type: Spontaneous
  Country: FR (occurrence: FR)
  Receive Date: 20190716
  Receipt Date: 20190716
  Transmission Date: 20191004
  Serious: Yes (Hospitalization)
  Sender: FDA-Public Use
  Company Number: FR-009507513-1907FRA005224

PATIENT
  Age: 62 Year
  Sex: Male
  Weight: 66 kg

DRUGS (1)
  1. KEYTRUDA [Suspect]
     Active Substance: PEMBROLIZUMAB
     Indication: LUNG NEOPLASM MALIGNANT
     Dosage: 2 MILLIGRAM/KILOGRAM, Q3W
     Route: 041
     Dates: start: 20181003

REACTIONS (2)
  - Polyarthritis [Recovering/Resolving]
  - Onychomycosis [Recovering/Resolving]

NARRATIVE: CASE EVENT DATE: 201904
